FAERS Safety Report 7085344-X (Version None)
Quarter: 2010Q4

REPORT INFORMATION
  Report Type: 
  Country: None (occurrence: None)
  Receive Date: 20101105
  Receipt Date: 20101028
  Transmission Date: 20110411
  Serious: Yes (Hospitalization)
  Sender: FDA-Public Use
  Company Number: GB-PFIZER INC-2010137851

PATIENT

DRUGS (3)
  1. SERTRALINE HYDROCHLORIDE [Suspect]
     Dosage: 500 MG, 1X/DAY
     Route: 048
  2. CO-CODAMOL [Concomitant]
     Dosage: 2 DF, 4X/DAY
     Route: 048
  3. OMEPRAZOLE [Concomitant]
     Dosage: 40 MG, 1X/DAY
     Route: 048

REACTIONS (2)
  - PEPTIC ULCER [None]
  - PEPTIC ULCER HAEMORRHAGE [None]
